FAERS Safety Report 6120937-5 (Version None)
Quarter: 2009Q1

REPORT INFORMATION
  Report Type: 
  Country: None (occurrence: None)
  Receive Date: 20090312
  Receipt Date: 20090310
  Transmission Date: 20090719
  Serious: Yes (Other)
  Sender: FDA-Public Use
  Company Number: SP02266

PATIENT
  Age: 20 Year
  Sex: Male

DRUGS (7)
  1. COLAZAL [Suspect]
     Indication: COLITIS ULCERATIVE
     Dosage: 6.75 GM (2.25 GM,3 IN 1 D),ORAL
     Route: 048
     Dates: start: 20090109, end: 20090114
  2. ZINACEF [Concomitant]
  3. FLAGYL [Concomitant]
  4. PREDNISOLONE (10 MILLIGRAM) [Concomitant]
  5. CALCIGRAM FORTE (TABLETS) [Concomitant]
  6. SOMAC [Concomitant]
  7. IMUREL (TABLETS) [Concomitant]

REACTIONS (1)
  - NEUTROPENIA [None]
